FAERS Safety Report 25397249 (Version 1)
Quarter: 2025Q2

REPORT INFORMATION
  Report Type: Spontaneous
  Country: IT (occurrence: IT)
  Receive Date: 20250604
  Receipt Date: 20250604
  Transmission Date: 20250716
  Serious: Yes (Other)
  Sender: TAKEDA
  Company Number: IT-JNJFOC-20250536772

PATIENT
  Sex: Female

DRUGS (4)
  1. VELCADE [Suspect]
     Active Substance: BORTEZOMIB
     Indication: Primary amyloidosis
     Dates: start: 20130129, end: 20130827
  2. VELCADE [Suspect]
     Active Substance: BORTEZOMIB
     Dates: start: 20131120, end: 20140221
  3. DEXAMETHASONE [Suspect]
     Active Substance: DEXAMETHASONE
     Indication: Primary amyloidosis
     Dates: start: 20131120, end: 20140221
  4. DEXAMETHASONE [Suspect]
     Active Substance: DEXAMETHASONE
     Dates: start: 20130129, end: 20130827

REACTIONS (2)
  - Primary amyloidosis [Unknown]
  - Off label use [Unknown]
